FAERS Safety Report 6588766-6 (Version None)
Quarter: 2010Q1

REPORT INFORMATION
  Report Type: 
  Country: None (occurrence: None)
  Receive Date: 20100218
  Receipt Date: 20100208
  Transmission Date: 20100710
  Serious: Yes (Hospitalization, Congenital Anomaly, Other)
  Sender: FDA-Public Use
  Company Number: NO-WATSON-2010-01644

PATIENT
  Age: 16 Day
  Sex: Male
  Weight: 4.2 kg

DRUGS (2)
  1. LAMOTRIGINE [Suspect]
     Indication: DRUG EXPOSURE DURING PREGNANCY
     Dosage: UNK
     Route: 063
  2. LAMOTRIGINE [Suspect]
     Indication: DRUG EXPOSURE VIA BREAST MILK

REACTIONS (3)
  - APNOEA [None]
  - CYANOSIS [None]
  - PULMONARY VALVE STENOSIS [None]
